FAERS Safety Report 9411152 (Version 1)
Quarter: 2013Q3

REPORT INFORMATION
  Report Type: Report from Study
  Country: BR (occurrence: BR)
  Receive Date: 20130721
  Receipt Date: 20130721
  Transmission Date: 20140515
  Serious: Yes (Other)
  Sender: FDA-Public Use
  Company Number: PHHY2013BR076229

PATIENT
  Sex: Female

DRUGS (9)
  1. TEGRETOL [Suspect]
     Dosage: 2 DF, DAILY
     Route: 048
  2. TEGRETOL [Suspect]
     Dosage: 1 DF, DAILY
     Route: 048
  3. EXELON PATCH [Suspect]
     Indication: FRONTOTEMPORAL DEMENTIA
     Dosage: HALF PATCH/ EVERY 24 HOURS
     Route: 062
  4. ZYPREXA [Suspect]
     Indication: HALLUCINATION
     Dosage: 2 DF, DAILY
     Route: 048
  5. ZYPREXA [Suspect]
     Dosage: 1 MG, DAILY
     Route: 048
  6. AMYTRIL [Suspect]
     Dosage: 1 DF, DF
     Route: 048
  7. AMYTRIL [Suspect]
     Dosage: 0.5 DF, DAILY
     Route: 048
  8. CORUS [Concomitant]
     Indication: HYPERTENSION
     Dosage: 2 DF, DAILY
     Route: 048
  9. ANGIPRESS [Concomitant]
     Indication: HYPERTENSION
     Dosage: 2 DF, DAILY
     Route: 048

REACTIONS (2)
  - Parkinsonism [Recovering/Resolving]
  - Muscular weakness [Recovering/Resolving]
